FAERS Safety Report 18445875 (Version 7)
Quarter: 2022Q2

REPORT INFORMATION
  Report Type: Spontaneous
  Country: GB (occurrence: GB)
  Receive Date: 20201030
  Receipt Date: 20220527
  Transmission Date: 20220721
  Serious: Yes (Other)
  Sender: FDA-Public Use
  Company Number: GB-GLAXOSMITHKLINE-GB2020EME212616

PATIENT

DRUGS (24)
  1. ABACAVIR SULFATE\LAMIVUDINE\ZIDOVUDINE [Suspect]
     Active Substance: ABACAVIR SULFATE\LAMIVUDINE\ZIDOVUDINE
     Indication: HIV infection
     Dosage: UNK,245
  2. COMBIVIR [Suspect]
     Active Substance: LAMIVUDINE\ZIDOVUDINE
     Indication: HIV infection
     Dosage: UNK,245
     Route: 065
  3. TRIUMEQ [Suspect]
     Active Substance: ABACAVIR SULFATE\DOLUTEGRAVIR SODIUM\LAMIVUDINE
     Indication: HIV infection
     Dosage: UNK
     Route: 065
  4. ZIDOVUDINE [Suspect]
     Active Substance: ZIDOVUDINE
     Indication: HIV infection
     Dosage: UNK
     Route: 065
  5. ZIDOVUDINE [Suspect]
     Active Substance: ZIDOVUDINE
     Dosage: UNK
  6. LAMIVUDINE [Suspect]
     Active Substance: LAMIVUDINE
     Indication: HIV infection
     Dosage: UNK
     Route: 065
  7. LAMIVUDINE [Suspect]
     Active Substance: LAMIVUDINE
     Dosage: UNK
     Route: 065
  8. ABACAVIR SULFATE [Suspect]
     Active Substance: ABACAVIR SULFATE
     Indication: HIV infection
     Dosage: UNK
  9. KALETRA [Suspect]
     Active Substance: LOPINAVIR\RITONAVIR
     Indication: HIV infection
     Dosage: UNK
     Route: 065
  10. COBICISTAT\DARUNAVIR ETHANOLATE [Suspect]
     Active Substance: COBICISTAT\DARUNAVIR ETHANOLATE
     Indication: HIV infection
     Dosage: UNK
  11. EDURANT [Suspect]
     Active Substance: RILPIVIRINE HYDROCHLORIDE
     Indication: HIV infection
     Dosage: UNK
     Route: 065
  12. DARUNAVIR\RITONAVIR [Suspect]
     Active Substance: DARUNAVIR\RITONAVIR
     Indication: HIV infection
     Dosage: UNK, QD, TABLET
  13. DARUNAVIR [Suspect]
     Active Substance: DARUNAVIR
     Indication: HIV infection
     Dosage: 1 DF, QD,245
     Route: 065
  14. DARUNAVIR [Suspect]
     Active Substance: DARUNAVIR
     Dosage: UNK UNK, QD
  15. DARUNAVIR [Suspect]
     Active Substance: DARUNAVIR
     Dosage: UNK
  16. RITONAVIR [Suspect]
     Active Substance: RITONAVIR
     Indication: HIV infection
     Dosage: 1 DF, QD
     Route: 065
  17. RITONAVIR [Suspect]
     Active Substance: RITONAVIR
     Dosage: UNK UNK, QD
  18. RITONAVIR [Suspect]
     Active Substance: RITONAVIR
     Dosage: UNK
  19. RITONAVIR [Suspect]
     Active Substance: RITONAVIR
     Dosage: UNK UNK, QD
  20. LOPINAVIR [Suspect]
     Active Substance: LOPINAVIR
     Indication: HIV infection
     Dosage: UNK
     Route: 065
  21. TYBOST [Suspect]
     Active Substance: COBICISTAT
     Indication: HIV infection
     Dosage: UNK
     Route: 065
  22. COBICISTAT [Suspect]
     Active Substance: COBICISTAT
     Indication: HIV infection
     Dosage: UNK
  23. COBICISTAT [Suspect]
     Active Substance: COBICISTAT
     Dosage: UNK,245
  24. COBICISTAT [Suspect]
     Active Substance: COBICISTAT
     Dosage: UNK,245

REACTIONS (10)
  - Neuropathy peripheral [Unknown]
  - Lipoedema [Unknown]
  - Nerve injury [Unknown]
  - Skin discolouration [Unknown]
  - Lip discolouration [Unknown]
  - Nail discolouration [Unknown]
  - Somnolence [Unknown]
  - Memory impairment [Unknown]
  - Low density lipoprotein increased [Unknown]
  - Lipodystrophy acquired [Unknown]
